FAERS Safety Report 9585708 (Version 1)
Quarter: 2013Q4

REPORT INFORMATION
  Report Type: Spontaneous
  Country: US (occurrence: US)
  Receive Date: 20131003
  Receipt Date: 20131003
  Transmission Date: 20140711
  Serious: No
  Sender: FDA-Public Use
  Company Number: US-B.I. PHARMACEUTICALS,INC./RIDGEFIELD-2013-BI-30156BP

PATIENT
  Sex: Female

DRUGS (1)
  1. CATAPRES TTS [Suspect]
     Indication: HYPERTENSION
     Dosage: FORMULATION: PATCH
     Route: 061

REACTIONS (1)
  - Drug effect decreased [Unknown]
